FAERS Safety Report 20579132 (Version 2)
Quarter: 2022Q4

REPORT INFORMATION
  Report Type: Spontaneous
  Country: FR (occurrence: FR)
  Receive Date: 20220310
  Receipt Date: 20221028
  Transmission Date: 20230112
  Serious: Yes (Death, Other)
  Sender: FDA-Public Use
  Company Number: FR-BRISTOL-MYERS SQUIBB COMPANY-BMS-2021-145052

PATIENT
  Age: 76 Year
  Sex: Female

DRUGS (22)
  1. NIVOLUMAB [Suspect]
     Active Substance: NIVOLUMAB
     Indication: Product used for unknown indication
     Dosage: 1200 MG
     Route: 065
     Dates: start: 20210520, end: 20210715
  2. CABOZANTINIB [Suspect]
     Active Substance: CABOZANTINIB
     Indication: Non-small cell lung cancer metastatic
     Dosage: 40 MG, QD
     Route: 048
     Dates: start: 20210729
  3. ATEZOLIZUMAB [Suspect]
     Active Substance: ATEZOLIZUMAB
     Indication: Non-small cell lung cancer metastatic
     Dosage: 1200 MG, Q3WEEKS
     Route: 042
     Dates: start: 20210729
  4. TELMISARTAN [Concomitant]
     Active Substance: TELMISARTAN
     Indication: Hypertension
     Dosage: UNK
     Route: 048
  5. JANUMET [Concomitant]
     Active Substance: METFORMIN HYDROCHLORIDE\SITAGLIPTIN PHOSPHATE
     Indication: Diabetes mellitus
     Dosage: 1 IU,1 IN 1 D
     Route: 048
     Dates: start: 2003
  6. GLIMEPIRIDE [Concomitant]
     Active Substance: GLIMEPIRIDE
     Indication: Diabetes mellitus
     Dosage: 3 MG, QD
     Route: 048
     Dates: start: 2003
  7. ESOMEPRAZOLE [Concomitant]
     Active Substance: ESOMEPRAZOLE
     Indication: Product used for unknown indication
     Dosage: 20 MG, QD
     Route: 048
     Dates: start: 2011
  8. OXAZEPAM [Concomitant]
     Active Substance: OXAZEPAM
     Indication: Anxiety
     Dosage: 25 MG, QD
     Route: 048
     Dates: start: 2016
  9. ACETAMINOPHEN [Concomitant]
     Active Substance: ACETAMINOPHEN
     Indication: Pain
     Dosage: 1 G
     Route: 048
     Dates: start: 202012
  10. ZOPICLONE [Concomitant]
     Active Substance: ZOPICLONE
     Indication: Insomnia
     Dosage: 7.5 MG, QD
     Route: 048
     Dates: start: 2016
  11. NITROFURANTOIN [Concomitant]
     Active Substance: NITROFURANTOIN
     Indication: Urinary tract infection
     Dosage: 100 MG, 3 IN 1 D
     Route: 048
     Dates: start: 20210823, end: 20210830
  12. ECONAZOLE [Concomitant]
     Active Substance: ECONAZOLE
     Indication: Vulvovaginal pain
     Dosage: 2 IU,1 IN 1 AS REQUIRED
     Route: 061
     Dates: start: 202105, end: 20210819
  13. SERTACONAZOLE NITRATE [Concomitant]
     Active Substance: SERTACONAZOLE NITRATE
     Indication: Vulvovaginal pain
     Dosage: 1 IU,2 IN 1 D
     Route: 061
     Dates: start: 20210819, end: 20210903
  14. SERTACONAZOLE NITRATE [Concomitant]
     Active Substance: SERTACONAZOLE NITRATE
     Dosage: 1 IU,1 IN 1 D
     Route: 067
     Dates: start: 20210819, end: 20210819
  15. SERTACONAZOLE NITRATE [Concomitant]
     Active Substance: SERTACONAZOLE NITRATE
     Dosage: 1 U,1 IN 1 D
     Route: 067
     Dates: start: 20211203, end: 20211203
  16. FLUCONAZOLE [Concomitant]
     Active Substance: FLUCONAZOLE
     Indication: Vulvovaginal pain
     Dosage: 150 MG, QD
     Route: 048
     Dates: start: 20210819, end: 20210909
  17. MUCOGYNE [Concomitant]
     Indication: Vulvovaginal pain
     Dosage: 1 IU,1 IN 1 AS REQUIRED
     Route: 061
     Dates: start: 20210827, end: 20210909
  18. PNEUMOCOCCAL VACCINE POLYVALENT NOS [Concomitant]
     Active Substance: PNEUMOCOCCAL VACCINE POLYVALENT
     Indication: Product used for unknown indication
     Dosage: 1 IU,1 IN 1 AS REQUIRED
     Route: 030
     Dates: start: 20211202, end: 20211202
  19. UNSPECIFIED INGREDIENT [Concomitant]
     Active Substance: UNSPECIFIED INGREDIENT
     Indication: Dry skin
     Dosage: 1 U (1 IN 1 AS REQUIRED)
     Route: 061
     Dates: start: 202110
  20. LEVOFLOXACIN [Concomitant]
     Active Substance: LEVOFLOXACIN
     Indication: Product used for unknown indication
     Dosage: 500 MG, QD
     Route: 048
     Dates: start: 20211227
  21. OXYGEN [Concomitant]
     Active Substance: OXYGEN
     Indication: Dyspnoea
     Dosage: 2 U (1 IN 1 AS REQUIRED)
     Route: 045
     Dates: start: 20211227
  22. DIETARY SUPPLEMENT [Concomitant]
     Active Substance: DIETARY SUPPLEMENT
     Indication: Product used for unknown indication
     Dosage: UNK

REACTIONS (1)
  - Death [Fatal]

NARRATIVE: CASE EVENT DATE: 20220203
